FAERS Safety Report 24163406 (Version 1)
Quarter: 2024Q3

REPORT INFORMATION
  Report Type: Spontaneous
  Country: CN (occurrence: CN)
  Receive Date: 20240801
  Receipt Date: 20240801
  Transmission Date: 20241016
  Serious: Yes (Other)
  Sender: GILEAD
  Company Number: CN-GILEAD-2024-0682606

PATIENT
  Age: 58 Year
  Sex: Female
  Weight: 57 kg

DRUGS (5)
  1. TRODELVY [Suspect]
     Active Substance: SACITUZUMAB GOVITECAN-HZIY
     Indication: Breast cancer
     Dosage: 540 MG, QD
     Route: 041
     Dates: start: 20240703, end: 20240703
  2. RECOMBINANT HUMAN GRANULOCYTE COLONY STIMULATING FACTOR FOR INJECTION [Concomitant]
     Dosage: 300 UG
     Route: 058
     Dates: start: 20240712
  3. RECOMBINANT HUMAN THROMBOPOIETIN [Concomitant]
     Active Substance: RECOMBINANT HUMAN THROMBOPOIETIN
     Dosage: 15000 U
     Route: 058
  4. MECAPEGFILGRASTIM [Concomitant]
     Active Substance: MECAPEGFILGRASTIM
     Dosage: 6 MG
     Route: 058
  5. AVATROMBOPAG [Concomitant]
     Active Substance: AVATROMBOPAG
     Dosage: 40 MG, QD
     Route: 048

REACTIONS (1)
  - Myelosuppression [Recovered/Resolved]
